FAERS Safety Report 9298422 (Version 2)
Quarter: 2013Q2

REPORT INFORMATION
  Report Type: Spontaneous
  Country: US (occurrence: US)
  Receive Date: 20130520
  Receipt Date: 20130613
  Transmission Date: 20140414
  Serious: Yes (Other)
  Sender: FDA-Public Use
  Company Number: US-009507513-1305USA010461

PATIENT
  Age: 32 Year
  Sex: Female
  Weight: 108.84 kg

DRUGS (3)
  1. NEXPLANON [Suspect]
     Indication: CONTRACEPTION
     Dosage: 1 ROD INSERTED FOR UP TO THREE YEARS
     Route: 058
     Dates: start: 20130506, end: 20130515
  2. NEXPLANON [Suspect]
     Dosage: UNK
     Route: 058
     Dates: start: 20130515
  3. LIDOCAINE [Suspect]
     Dosage: UNK

REACTIONS (3)
  - Device expulsion [Recovered/Resolved]
  - Injection site bruising [Not Recovered/Not Resolved]
  - Rash [Not Recovered/Not Resolved]
